FAERS Safety Report 12455777 (Version 1)
Quarter: 2016Q2

REPORT INFORMATION
  Report Type: Spontaneous
  Country: NL (occurrence: NL)
  Receive Date: 20160610
  Receipt Date: 20160610
  Transmission Date: 20160815
  Serious: Yes (Death, Hospitalization)
  Sender: FDA-Public Use
  Company Number: NL-BAYER-2016-105910

PATIENT
  Age: 83 Year
  Sex: Female
  Weight: 72 kg

DRUGS (13)
  1. ASPIRIN. [Concomitant]
     Active Substance: ASPIRIN
     Dosage: 80 MG, QD
     Route: 048
  2. METOPROLOL SUCCINATE. [Concomitant]
     Active Substance: METOPROLOL SUCCINATE
     Dosage: 200 MG, QD
     Route: 048
  3. CODEINE PHOSPHATE [Concomitant]
     Active Substance: CODEINE PHOSPHATE
     Dosage: 20 MG, TID
     Route: 048
  4. NAPROXEN SODIUM HIGH DOSE (} 220 MG) [Interacting]
     Active Substance: NAPROXEN SODIUM
     Indication: PAIN
     Dosage: 500 MG, BID
     Route: 048
     Dates: start: 20160425, end: 20160502
  5. CIPROXIN [Suspect]
     Active Substance: CIPROFLOXACIN
     Indication: URINARY TRACT INFECTION
     Dosage: 500 MG, BID
     Route: 048
     Dates: start: 20160428, end: 20160502
  6. TRANSTEC [Concomitant]
     Active Substance: BUPRENORPHINE
     Dosage: 35MCG/24 HOURS, 0.5 DF, BIW
     Route: 062
  7. COLECALCIFEROL [Concomitant]
     Active Substance: CHOLECALCIFEROL
     Dosage: 800 IU, QD
     Route: 048
  8. LIDOCAINE. [Concomitant]
     Active Substance: LIDOCAINE
     Dosage: 30MG/G
     Route: 003
  9. CODEINE W/PARACETAMOL [Concomitant]
     Active Substance: ACETAMINOPHEN\CODEINE PHOSPHATE
     Dosage: 1 DF (PARACETAMOL 500/ CODEINE 20MG), BID
     Route: 048
  10. OMEPRAZOL [Concomitant]
     Active Substance: OMEPRAZOLE
     Dosage: 20 MG, QD
     Route: 048
  11. MOVICOL [MACROGOL 3350,POTASSIUM CHLORIDE,SODIUM BICARBONATE,SODIU [Concomitant]
     Dosage: 1 DF, BID
     Route: 048
  12. SORBITOL. [Concomitant]
     Active Substance: SORBITOL
     Route: 003
  13. CRESTOR [Concomitant]
     Active Substance: ROSUVASTATIN CALCIUM
     Dosage: 40 MG, QD
     Route: 048

REACTIONS (4)
  - Drug interaction [Fatal]
  - Renal failure [Fatal]
  - Rhabdomyolysis [Fatal]
  - Liver disorder [Fatal]

NARRATIVE: CASE EVENT DATE: 20160429
